FAERS Safety Report 11782682 (Version 2)
Quarter: 2016Q1

REPORT INFORMATION
  Report Type: Report from Study
  Country: US (occurrence: US)
  Receive Date: 20151127
  Receipt Date: 20160215
  Transmission Date: 20160525
  Serious: Yes (Hospitalization, Other)
  Sender: FDA-Public Use
  Company Number: US-AMGEN-USASL2015124112

PATIENT
  Age: 73 Year
  Sex: Female

DRUGS (2)
  1. NPLATE [Suspect]
     Active Substance: ROMIPLOSTIM
     Indication: IMMUNE THROMBOCYTOPENIC PURPURA
     Dosage: UNK, UNK
     Route: 065
     Dates: start: 201410
  2. PREDNISONE. [Concomitant]
     Active Substance: PREDNISONE

REACTIONS (9)
  - Urinary tract infection [Recovering/Resolving]
  - Renal failure [Recovering/Resolving]
  - Gait disturbance [Recovering/Resolving]
  - Diverticulitis [Recovering/Resolving]
  - Hospitalisation [Recovered/Resolved]
  - Internal haemorrhage [Recovering/Resolving]
  - Feeding disorder [Recovering/Resolving]
  - Cellulitis [Recovering/Resolving]
  - Platelet count decreased [Recovering/Resolving]

NARRATIVE: CASE EVENT DATE: 201601
